FAERS Safety Report 9182252 (Version 1)
Quarter: 2012Q4

REPORT INFORMATION
  Report Type: 
  Country: BR (occurrence: BR)
  Receive Date: 20121030
  Receipt Date: 20121030
  Transmission Date: 20130627
  Serious: Yes (Other)
  Sender: FDA-Public Use
  Company Number: PHHY2012BR097360

PATIENT
  Sex: Female

DRUGS (2)
  1. TRILEPTAL [Suspect]
     Indication: ARRHYTHMIA
     Dosage: Once daily
  2. TRILEPTAL [Suspect]
     Indication: CONVULSION

REACTIONS (2)
  - Syncope [Recovered/Resolved]
  - Convulsion [Recovered/Resolved]
